FAERS Safety Report 8970774 (Version 1)
Quarter: 2012Q4

REPORT INFORMATION
  Report Type: 
  Country: US (occurrence: US)
  Receive Date: 20121218
  Receipt Date: 20121218
  Transmission Date: 20130627
  Serious: Yes (Other)
  Sender: FDA-Public Use
  Company Number: US-SANOFI-AVENTIS-2012SA090450

PATIENT
  Age: 80 Year
  Sex: Female

DRUGS (1)
  1. MULTAQ [Suspect]
     Indication: DRUG USE FOR UNKNOWN INDICATION
     Route: 048

REACTIONS (2)
  - Pulmonary fibrosis [Unknown]
  - Pulmonary hypertension [Unknown]
